FAERS Safety Report 9404065 (Version 1)
Quarter: 2013Q3

REPORT INFORMATION
  Report Type: Spontaneous
  Country: US (occurrence: None)
  Receive Date: 20130716
  Receipt Date: 20130716
  Transmission Date: 20140515
  Serious: Yes (Disabling, Other)
  Sender: FDA-Public Use
  Company Number: None

PATIENT
  Age: 56 Year
  Sex: Male
  Weight: 99.79 kg

DRUGS (1)
  1. CIPROFLOXACIN [Suspect]
     Indication: PROSTATITIS
     Dosage: 500MG TWICE DAILY PO
     Route: 048
     Dates: start: 20130625, end: 20130708

REACTIONS (9)
  - Burning sensation [None]
  - Amnesia [None]
  - Tremor [None]
  - Tinnitus [None]
  - Myalgia [None]
  - Arthralgia [None]
  - Pain in extremity [None]
  - Anxiety [None]
  - Insomnia [None]
